FAERS Safety Report 25444848 (Version 1)
Quarter: 2025Q2

REPORT INFORMATION
  Report Type: Spontaneous
  Country: US (occurrence: None)
  Receive Date: 20250616
  Receipt Date: 20250616
  Transmission Date: 20250716
  Serious: No
  Sender: FDA-CTU
  Company Number: None

PATIENT
  Age: 63 Year
  Sex: Female
  Weight: 61.2 kg

DRUGS (1)
  1. CETIRIZINE HYDROCHLORIDE [Suspect]
     Active Substance: CETIRIZINE HYDROCHLORIDE
     Indication: Hypersensitivity
     Dosage: 1 TABLET DAILY ORAL
     Route: 048
     Dates: end: 20250612

REACTIONS (3)
  - Withdrawal syndrome [None]
  - Pruritus [None]
  - Scratch [None]

NARRATIVE: CASE EVENT DATE: 20250615
